FAERS Safety Report 26081442 (Version 1)
Quarter: 2025Q4

REPORT INFORMATION
  Report Type: Spontaneous
  Country: GB (occurrence: GB)
  Receive Date: 20251124
  Receipt Date: 20251124
  Transmission Date: 20260118
  Serious: Yes (Disabling, Other)
  Sender: Haleon PLC
  Company Number: None

PATIENT
  Sex: Female
  Weight: 90 kg

DRUGS (1)
  1. FLUTICASONE [Suspect]
     Active Substance: FLUTICASONE
     Indication: Nasal congestion
     Dosage: 2 SPRAYS IN EACH NOSTRIL 0D - 50 MCG
     Dates: start: 20241201, end: 20251001

REACTIONS (3)
  - Depression [Not Recovered/Not Resolved]
  - Nasal discomfort [Not Recovered/Not Resolved]
  - Anxiety [Not Recovered/Not Resolved]

NARRATIVE: CASE EVENT DATE: 20241201
